FAERS Safety Report 12154628 (Version 1)
Quarter: 2016Q1

REPORT INFORMATION
  Report Type: Spontaneous
  Country: US (occurrence: None)
  Receive Date: 20160304
  Receipt Date: 20160304
  Transmission Date: 20160526
  Serious: Yes (Other)
  Sender: FDA-Public Use
  Company Number: None

PATIENT
  Age: 60 Year
  Sex: Female
  Weight: 56.7 kg

DRUGS (4)
  1. BENADRYL [Concomitant]
     Active Substance: DIPHENHYDRAMINE HYDROCHLORIDE
  2. EXCEDRIN [Concomitant]
     Active Substance: ACETAMINOPHEN\ASPIRIN\CAFFEINE
  3. HYDROCHLOROTHIAZIDE 25 MG ACCORD [Suspect]
     Active Substance: HYDROCHLOROTHIAZIDE
     Indication: OSTEOPOROSIS
     Dosage: 1 PILL, ONCE DAILY, TAKEN BY MOUTH
     Dates: start: 20160210, end: 20160224
  4. SUDAFED [Concomitant]
     Active Substance: PSEUDOEPHEDRINE HYDROCHLORIDE

REACTIONS (4)
  - Osteoporosis [None]
  - Hyperhidrosis [None]
  - Sciatica [None]
  - Muscle spasms [None]

NARRATIVE: CASE EVENT DATE: 20160225
